FAERS Safety Report 20582448 (Version 1)
Quarter: 2022Q1

REPORT INFORMATION
  Report Type: Spontaneous
  Country: US (occurrence: None)
  Receive Date: 20220310
  Receipt Date: 20220310
  Transmission Date: 20220423
  Serious: Yes (Death)
  Sender: FDA-Public Use
  Company Number: None

PATIENT
  Age: 75 Year
  Sex: Male

DRUGS (5)
  1. HYCAMTIN [Suspect]
     Active Substance: TOPOTECAN HYDROCHLORIDE
     Indication: Product used for unknown indication
     Dosage: 4MG QD FOR 5 DAYS PO?
     Route: 048
     Dates: start: 20220106, end: 20220305
  2. ALBUTEROL [Concomitant]
     Active Substance: ALBUTEROL
  3. VIRTUSSIN AC [Concomitant]
     Active Substance: CODEINE PHOSPHATE\GUAIFENESIN
  4. VITAMINS [Concomitant]
     Active Substance: VITAMINS
  5. vitamin D [Concomitant]

REACTIONS (2)
  - Lung neoplasm malignant [None]
  - Condition aggravated [None]

NARRATIVE: CASE EVENT DATE: 20220305
